FAERS Safety Report 15370165 (Version 1)
Quarter: 2018Q3

REPORT INFORMATION
  Report Type: Spontaneous
  Country: US (occurrence: US)
  Receive Date: 20180904
  Receipt Date: 20180904
  Transmission Date: 20181010
  Serious: No
  Sender: FDA-Public Use
  Company Number: None

PATIENT
  Age: 37 Year
  Sex: Male
  Weight: 79.7 kg

DRUGS (1)
  1. CISPLATIN. [Suspect]
     Active Substance: CISPLATIN
     Dates: end: 20170808

REACTIONS (8)
  - Deafness [None]
  - Tinnitus [None]
  - Sinusitis [None]
  - Otitis media chronic [None]
  - Mastoid effusion [None]
  - Tympanic membrane perforation [None]
  - Otitis externa [None]
  - Condition aggravated [None]

NARRATIVE: CASE EVENT DATE: 20180807
